FAERS Safety Report 24737167 (Version 1)
Quarter: 2024Q4

REPORT INFORMATION
  Report Type: Spontaneous
  Country: RU (occurrence: RU)
  Receive Date: 20241216
  Receipt Date: 20241216
  Transmission Date: 20250114
  Serious: Yes (Other)
  Sender: NOVARTIS
  Company Number: RU-002147023-NVSC2024RU236994

PATIENT

DRUGS (2)
  1. TRAMETINIB [Suspect]
     Active Substance: TRAMETINIB
     Indication: Brain neoplasm
     Dosage: UNK (WITHOUT DABRAFENIB)
     Route: 065
  2. TOVORAFENIB [Concomitant]
     Active Substance: TOVORAFENIB
     Indication: Product used for unknown indication
     Dosage: UNK
     Route: 065

REACTIONS (3)
  - Myosclerosis [Unknown]
  - Rash [Unknown]
  - Off label use [Unknown]
